FAERS Safety Report 9819651 (Version 1)
Quarter: 2014Q1

REPORT INFORMATION
  Report Type: Spontaneous
  Country: US (occurrence: None)
  Receive Date: 20140113
  Receipt Date: 20140113
  Transmission Date: 20141002
  Serious: Yes (Death)
  Sender: FDA-Public Use
  Company Number: SYM-2014-14719

PATIENT
  Age: 33 Year
  Sex: Male

DRUGS (1)
  1. XENAZINE [Suspect]
     Indication: HUNTINGTON^S DISEASE
     Dosage: 12.5 MG AM + 25 MG PM, 2IN 1 D, ORAL
     Route: 048
     Dates: start: 20120328

REACTIONS (1)
  - Death [None]
